FAERS Safety Report 13380622 (Version 6)
Quarter: 2018Q1

REPORT INFORMATION
  Report Type: Report from Study
  Country: None (occurrence: US)
  Receive Date: 20170329
  Receipt Date: 20180228
  Transmission Date: 20180508
  Serious: Yes (Hospitalization, Other)
  Sender: FDA-Public Use
  Company Number: US-ABBVIE-17K-163-1921939-00

PATIENT
  Age: 67 Year
  Sex: Female

DRUGS (4)
  1. HUMIRA [Suspect]
     Active Substance: ADALIMUMAB
     Indication: PSORIATIC ARTHROPATHY
     Route: 058
  2. HUMIRA [Suspect]
     Active Substance: ADALIMUMAB
     Indication: RHEUMATOID ARTHRITIS
     Route: 058
     Dates: start: 2014
  3. AMLODIPINE [Concomitant]
     Active Substance: AMLODIPINE BESYLATE
     Indication: HYPERTENSION
  4. METOPROLOL. [Concomitant]
     Active Substance: METOPROLOL
     Indication: HYPERTENSION

REACTIONS (10)
  - Intervertebral disc protrusion [Unknown]
  - Blood iron decreased [Unknown]
  - Fibromyalgia [Unknown]
  - Arthralgia [Not Recovered/Not Resolved]
  - Sensitivity to weather change [Unknown]
  - Arthritis [Unknown]
  - Coronary artery occlusion [Recovered/Resolved]
  - Nerve compression [Unknown]
  - Nasal congestion [Unknown]
  - Drug ineffective [Unknown]

NARRATIVE: CASE EVENT DATE: 2017
